FAERS Safety Report 8188717-7 (Version None)
Quarter: 2012Q1

REPORT INFORMATION
  Report Type: 
  Country: None (occurrence: None)
  Receive Date: 20120306
  Receipt Date: 20120222
  Transmission Date: 20120608
  Serious: Yes (Hospitalization)
  Sender: FDA-Public Use
  Company Number: JP-CTI_01437_2012

PATIENT
  Sex: Female

DRUGS (12)
  1. SALICYLAMIDE/ACET/ANHYDROUS CAFF/PROMETHAZINE METHYLENEDISALICYLATE [Concomitant]
     Indication: PRODUCT USED FOR UNKNOWN INDICATION
     Dosage: DAILY DOSE 3 G/DAY
     Route: 048
     Dates: start: 20111219, end: 20111220
  2. MEIACT MS - CEFDITOREN PIVOXIL [Suspect]
     Indication: BRONCHITIS
     Dosage: DAILY DOSE 300 MG
     Route: 048
     Dates: start: 20111219, end: 20111220
  3. L-CARBOCISTEINE [Concomitant]
     Indication: PRODUCT USED FOR UNKNOWN INDICATION
     Dosage: DAILY DOSE 750 MG
     Route: 048
     Dates: start: 20111219, end: 20111221
  4. GLYBURIDE [Concomitant]
     Indication: DIABETES MELLITUS
     Dosage: DAILY DOSE 1.25 MG
     Route: 048
  5. IMIDAPRIL HYDROCHLORIDE [Concomitant]
     Indication: HYPERTENSION
     Dosage: DAILY DOSE 5MG
     Route: 048
  6. NIFEDIPINE [Concomitant]
     Indication: HYPERTENSION
     Dosage: DAILY DOSE 40MG
     Route: 048
  7. EPRAZINONE HYDROCHLORIDE [Concomitant]
     Indication: PRODUCT USED FOR UNKNOWN INDICATION
     Dosage: DAILY DOSE 60 MG
     Route: 048
     Dates: start: 20111219, end: 20111221
  8. FUROSEMIDE [Concomitant]
     Indication: HYPERTENSION
     Dosage: DAILY DOSE 20MG
     Route: 048
  9. EPINASTINE HYDROCHLORIDE [Concomitant]
     Indication: RHINITIS ALLERGIC
     Dosage: DAILY DOSE 20 MG
     Route: 048
  10. ASPIRIN [Concomitant]
     Indication: CEREBRAL INFARCTION
     Dosage: DAILY DOSE 100 MG
     Route: 048
  11. MAGNESIUM OXIDE [Concomitant]
     Indication: CONSTIPATION
     Dosage: DAILY DOSE 1.5 G
  12. SENNOSIDE A/B [Concomitant]
     Indication: CONSTIPATION
     Dosage: DAILY DOSE 24 MG
     Route: 048

REACTIONS (5)
  - MALAISE [None]
  - DECREASED APPETITE [None]
  - HEPATIC ENZYME INCREASED [None]
  - FATIGUE [None]
  - LIVER DISORDER [None]
